FAERS Safety Report 6672381-X (Version None)
Quarter: 2010Q2

REPORT INFORMATION
  Report Type: 
  Country: None (occurrence: None)
  Receive Date: 20100408
  Receipt Date: 20100331
  Transmission Date: 20101027
  Serious: Yes (Hospitalization)
  Sender: FDA-Public Use
  Company Number: US-JNJFOC-20100400691

PATIENT
  Sex: Male
  Weight: 95.26 kg

DRUGS (7)
  1. ULTRAM [Suspect]
     Indication: NECK PAIN
     Route: 048
  2. ULTRAM [Suspect]
     Route: 048
  3. ULTRAM [Suspect]
     Indication: BACK PAIN
     Route: 048
  4. ULTRAM [Suspect]
     Route: 048
  5. TRAMADOL HYDROCHLORIDE [Suspect]
     Indication: NECK PAIN
     Dosage: 6 TIMES IN 24 HOURS AS NEEDED
     Route: 048
  6. TRAMADOL HYDROCHLORIDE [Suspect]
     Indication: BACK PAIN
     Dosage: 6 TIMES IN 24 HOURS AS NEEDED
     Route: 048
  7. SELOKEN ZOC [Concomitant]
     Indication: ARRHYTHMIA
     Route: 048

REACTIONS (5)
  - BACK DISORDER [None]
  - HEART RATE INCREASED [None]
  - MUSCULOSKELETAL DISORDER [None]
  - SCIATICA [None]
  - THERAPEUTIC RESPONSE DECREASED [None]
